FAERS Safety Report 12932803 (Version 3)
Quarter: 2017Q1

REPORT INFORMATION
  Report Type: Spontaneous
  Country: US (occurrence: US)
  Receive Date: 20161111
  Receipt Date: 20170221
  Transmission Date: 20170428
  Serious: Yes (Hospitalization)
  Sender: FDA-Public Use
  Company Number: US-PFIZER INC-2016521904

PATIENT
  Age: 68 Year
  Sex: Female
  Weight: 90.26 kg

DRUGS (3)
  1. LYRICA [Suspect]
     Active Substance: PREGABALIN
     Indication: FIBROMYALGIA
     Dosage: 150 MG, 2X/DAY
     Route: 048
  2. LYRICA [Suspect]
     Active Substance: PREGABALIN
     Indication: RHEUMATOID ARTHRITIS
  3. CELEBREX [Concomitant]
     Active Substance: CELECOXIB
     Indication: RHEUMATOID ARTHRITIS
     Dosage: 200 MG, AS NEEDED

REACTIONS (8)
  - Atrioventricular block [Unknown]
  - Pneumonia [Recovered/Resolved]
  - Blood disorder [Unknown]
  - Insomnia [Unknown]
  - Sepsis [Recovered/Resolved]
  - Pain in extremity [Unknown]
  - Blood pressure abnormal [Unknown]
  - Malaise [Unknown]

NARRATIVE: CASE EVENT DATE: 201612
